FAERS Safety Report 5694492 (Version 3)
Quarter: 2017Q1

REPORT INFORMATION
  Report Type: Spontaneous
  Country: JP (occurrence: JP)
  Receive Date: 20041214
  Receipt Date: 20170207
  Transmission Date: 20170429
  Serious: Yes (Death, Other)
  Sender: FDA-Public Use
  Company Number: JP-BRISTOL-MYERS SQUIBB COMPANY-12791281

PATIENT
  Age: 33 Year
  Sex: Male

DRUGS (21)
  1. ETOPOSIDE BMS [Suspect]
     Active Substance: ETOPOSIDE
     Indication: LYMPHOMA
     Dosage: PREV. THERAPY:  MAR88-MAR89  JAN93-APR93  APR93-MAR-94  MAR94-AUG94
     Route: 042
     Dates: start: 199503, end: 199604
  2. METHOTREXATE. [Suspect]
     Active Substance: METHOTREXATE
     Indication: LYMPHOMA
     Dosage: PREV. THERAPY:  MAR88-MAR99
     Route: 065
     Dates: start: 19980721, end: 19980907
  3. MITOXANTRONE [Suspect]
     Active Substance: MITOXANTRONE HYDROCHLORIDE
     Indication: LYMPHOMA
     Dosage: UNK
     Route: 065
     Dates: start: 199403, end: 199408
  4. CLADRIBINE. [Suspect]
     Active Substance: CLADRIBINE
     Indication: LYMPHOMA
     Dosage: .09 MG/KG, QD
     Route: 042
     Dates: start: 19981016, end: 19981123
  5. VDS [Suspect]
     Active Substance: VINDESINE
     Indication: LYMPHOMA
     Dosage: PREV. THERAPY:  MAR88-MAR89
     Route: 065
     Dates: start: 199008, end: 199101
  6. SOBUZOXANE [Suspect]
     Active Substance: SOBUZOXANE
     Indication: LYMPHOMA
     Dosage: UNK
     Route: 065
     Dates: start: 199503, end: 199604
  7. MX2 (3^-DEAMINO-3^-MORPHOLINO-13-DEOXO-10-HYDROXYCARMINOMYCIN HYDROCHLORIDE) [Suspect]
     Active Substance: INVESTIGATIONAL PRODUCT
     Indication: LYMPHOMA
     Dosage: UNK
     Route: 065
     Dates: start: 199008, end: 199101
  8. CYCLOPHOSPHAMIDE. [Suspect]
     Active Substance: CYCLOPHOSPHAMIDE
     Indication: LYMPHOMA
     Dosage: PREV. THERAPY:  MAR88-MAR89  MAR92-JAN93
     Route: 065
     Dates: start: 199403, end: 199408
  9. BLEOMYCIN SULFATE [Suspect]
     Active Substance: BLEOMYCIN SULFATE
     Indication: LYMPHOMA
     Dosage: UNK
     Route: 065
     Dates: start: 198803, end: 198903
  10. ACNU [Suspect]
     Active Substance: NIMUSTINE
     Indication: LYMPHOMA
     Dosage: UNK
     Route: 065
     Dates: start: 199008, end: 199101
  11. THP-ADRIAMYCIN [Suspect]
     Active Substance: PIRARUBICIN
     Indication: LYMPHOMA
     Dosage: UNK
     Route: 065
     Dates: start: 199008, end: 199101
  12. DOXORUBICIN [Suspect]
     Active Substance: DOXORUBICIN
     Indication: LYMPHOMA
     Dosage: UNK
     Route: 065
     Dates: start: 198803, end: 198903
  13. VINCRISTINE SULFATE. [Suspect]
     Active Substance: VINCRISTINE SULFATE
     Indication: MYCOSIS FUNGOIDES
     Dosage: PREV. THERAPY:  JAN91-MAR92  MAR88-MAR89
     Route: 065
     Dates: start: 199203, end: 199301
  14. PREDNISOLONE. [Suspect]
     Active Substance: PREDNISOLONE
     Indication: LYMPHOMA
     Dosage: PREV. THERAPY:  JAN91-MAR92  AUG90-JAN91  MAR88-MAR89
     Route: 065
     Dates: start: 199203, end: 199306
  15. PROCARBAZINE [Suspect]
     Active Substance: PROCARBAZINE
     Indication: LYMPHOMA
     Dosage: PREV. THERAPY:  JAN91-MAR92  MAR88-MAR89
     Route: 065
     Dates: start: 199203, end: 199301
  16. RADIOTHERAPY [Concomitant]
     Active Substance: RADIATION THERAPY
     Indication: LYMPHOMA
     Dosage: UNK
     Route: 065
  17. PARAPLATIN [Suspect]
     Active Substance: CARBOPLATIN
     Indication: LYMPHOMA
     Dosage: UNK
     Route: 042
     Dates: start: 199301, end: 199304
  18. CYTARABINE ARABINOSIDE [Suspect]
     Active Substance: CYTARABINE
     Indication: PRODUCT USED FOR UNKNOWN INDICATION
     Dosage: UNK
     Route: 065
     Dates: start: 199403, end: 199408
  19. RITUXIMAB [Suspect]
     Active Substance: RITUXIMAB
     Indication: LYMPHOMA
     Dosage: UNK
     Route: 065
     Dates: start: 19960605, end: 19970916
  20. IFOSFAMIDE. [Suspect]
     Active Substance: IFOSFAMIDE
     Indication: LYMPHOMA
     Dosage: PREV THERAPY:  JAN91-MAR92
     Route: 065
     Dates: start: 199301, end: 199304
  21. MELPHALAN [Suspect]
     Active Substance: MELPHALAN
     Indication: PRODUCT USED FOR UNKNOWN INDICATION
     Dosage: UNK
     Route: 065
     Dates: start: 199403, end: 199408

REACTIONS (3)
  - Myelodysplastic syndrome [Unknown]
  - Death [Fatal]
  - Second primary malignancy [Unknown]
